FAERS Safety Report 6568744-3 (Version None)
Quarter: 2010Q1

REPORT INFORMATION
  Report Type: 
  Country: None (occurrence: None)
  Receive Date: 20100203
  Receipt Date: 20100125
  Transmission Date: 20100710
  Serious: Yes (Hospitalization)
  Sender: FDA-Public Use
  Company Number: GXKR2009IT09866

PATIENT
  Sex: Female

DRUGS (8)
  1. METOPROLOL HEXAL (NGX) [Suspect]
     Indication: MYOCARDIAL INFARCTION
     Dosage: 300 MG/DAY
     Route: 048
     Dates: start: 20090803
  2. POTASSIUM CANRENOATE SANDOZ (NGX) [Suspect]
     Indication: CARDIOVASCULAR DISORDER
     Dosage: 50 MG/DAY
     Route: 065
     Dates: start: 20090803
  3. PLAVIX [Suspect]
     Indication: CARDIOVASCULAR DISORDER
     Dosage: 75 MG/DAY
     Route: 048
     Dates: start: 20090803
  4. ASCRIPTIN [Suspect]
     Indication: MYOCARDIAL INFARCTION
     Dosage: 150 MG/DAY
     Route: 048
     Dates: start: 20090803
  5. KANRENOL [Suspect]
     Indication: MYOCARDIAL INFARCTION
     Dosage: 25 MG
     Route: 048
     Dates: start: 20090803
  6. PANTORC [Suspect]
     Indication: GASTRITIS
     Dosage: 40 MG/DAY
     Route: 048
     Dates: start: 20090803
  7. TORVAST [Suspect]
     Indication: MYOCARDIAL INFARCTION
     Dosage: 40 MG
     Route: 048
     Dates: start: 20090803
  8. TAREG [Suspect]
     Indication: MYOCARDIAL INFARCTION
     Dosage: 40 MG/DAY
     Route: 048
     Dates: start: 20090803

REACTIONS (2)
  - DERMATITIS EXFOLIATIVE GENERALISED [None]
  - RASH ERYTHEMATOUS [None]
